FAERS Safety Report 17671082 (Version 3)
Quarter: 2020Q2

REPORT INFORMATION
  Report Type: Report from Study
  Country: None (occurrence: CH)
  Receive Date: 20200415
  Receipt Date: 20200526
  Transmission Date: 20200713
  Serious: Yes (Hospitalization, Other)
  Sender: FDA-Public Use
  Company Number: CH-ABBVIE-20K-151-3364060-00

PATIENT
  Age: 78 Year
  Sex: Male
  Weight: 70.5 kg

DRUGS (3)
  1. DUODOPA [Suspect]
     Active Substance: CARBIDOPA\LEVODOPA
     Indication: PARKINSON^S DISEASE
     Route: 050
     Dates: start: 20191217, end: 20191226
  2. DUODOPA [Suspect]
     Active Substance: CARBIDOPA\LEVODOPA
     Dosage: MD: 3 ML, CR DAY: 3 ML/H, CR NIGHT: 1.3 ML/H, ED: 0.5 ML, 24 H THERAPY
     Route: 050
     Dates: start: 20191231
  3. DUODOPA [Suspect]
     Active Substance: CARBIDOPA\LEVODOPA
     Dosage: MD: 3 ML, CRD: 2.9 ML/H, CRN: 1.1 ML/H, ED: 0.5 ML, 24 H THERAPY
     Route: 050
     Dates: start: 20191226, end: 20191231

REACTIONS (8)
  - Decreased appetite [Not Recovered/Not Resolved]
  - Nausea [Recovered/Resolved]
  - Vomiting [Recovered/Resolved]
  - Eating disorder [Not Recovered/Not Resolved]
  - Malnutrition [Unknown]
  - Mobility decreased [Recovering/Resolving]
  - Cachexia [Unknown]
  - Weight decreased [Recovering/Resolving]

NARRATIVE: CASE EVENT DATE: 202003
